FAERS Safety Report 23774073 (Version 1)
Quarter: 2024Q2

REPORT INFORMATION
  Report Type: Spontaneous
  Country: US (occurrence: US)
  Receive Date: 20240423
  Receipt Date: 20240423
  Transmission Date: 20240716
  Serious: Yes (Death)
  Sender: FDA-Public Use
  Company Number: US-SHIONOGI, INC-2024000972

PATIENT

DRUGS (18)
  1. FETROJA [Suspect]
     Active Substance: CEFIDEROCOL SULFATE TOSYLATE
     Indication: Drug resistance
     Dosage: UNK
     Route: 042
  2. FETROJA [Suspect]
     Active Substance: CEFIDEROCOL SULFATE TOSYLATE
     Indication: Pseudomonas infection
     Dosage: 1 G, 12 HOUR
     Route: 042
  3. FETROJA [Suspect]
     Active Substance: CEFIDEROCOL SULFATE TOSYLATE
     Indication: Haematological infection
  4. FETROJA [Suspect]
     Active Substance: CEFIDEROCOL SULFATE TOSYLATE
     Indication: Pneumonia
  5. POLYMYXIN B [Suspect]
     Active Substance: POLYMYXIN B
     Indication: Drug resistance
     Dosage: 15000IU/KG
     Route: 042
  6. POLYMYXIN B [Suspect]
     Active Substance: POLYMYXIN B
     Indication: Pseudomonas infection
  7. POLYMYXIN B [Suspect]
     Active Substance: POLYMYXIN B
     Indication: Haematological infection
  8. POLYMYXIN B [Suspect]
     Active Substance: POLYMYXIN B
     Indication: Pneumonia
  9. FOSFOMYCIN [Suspect]
     Active Substance: FOSFOMYCIN
     Indication: Drug resistance
     Dosage: 3 G, 6 HOUR
     Route: 048
  10. FOSFOMYCIN [Suspect]
     Active Substance: FOSFOMYCIN
     Indication: Pseudomonas infection
  11. FOSFOMYCIN [Suspect]
     Active Substance: FOSFOMYCIN
     Indication: Pneumonia
  12. FOSFOMYCIN [Suspect]
     Active Substance: FOSFOMYCIN
     Indication: Haematological infection
  13. AZTREONAM [Concomitant]
     Active Substance: AZTREONAM
     Indication: Drug resistance
     Dosage: UNK
     Route: 065
  14. AZTREONAM [Concomitant]
     Active Substance: AZTREONAM
     Indication: Pseudomonas infection
  15. AZTREONAM [Concomitant]
     Active Substance: AZTREONAM
     Indication: Haematological infection
  16. AVIBACTAM SODIUM\CEFTAZIDIME [Concomitant]
     Active Substance: AVIBACTAM SODIUM\CEFTAZIDIME
     Indication: Drug resistance
     Dosage: UNK
     Route: 065
  17. AVIBACTAM SODIUM\CEFTAZIDIME [Concomitant]
     Active Substance: AVIBACTAM SODIUM\CEFTAZIDIME
     Indication: Pseudomonas infection
  18. AVIBACTAM SODIUM\CEFTAZIDIME [Concomitant]
     Active Substance: AVIBACTAM SODIUM\CEFTAZIDIME
     Indication: Haematological infection

REACTIONS (1)
  - Death [Fatal]
